FAERS Safety Report 11749797 (Version 1)
Quarter: 2015Q4

REPORT INFORMATION
  Report Type: Spontaneous
  Country: US (occurrence: None)
  Receive Date: 20151116
  Receipt Date: 20151116
  Transmission Date: 20160304
  Serious: No
  Sender: FDA-Public Use
  Company Number: None

PATIENT
  Age: 64 Year
  Sex: Male
  Weight: 85.9 kg

DRUGS (1)
  1. IOHEXOL [Suspect]
     Active Substance: IOHEXOL
     Indication: COMPUTERISED TOMOGRAM HEAD
     Route: 042
     Dates: start: 20151025, end: 20151025

REACTIONS (6)
  - Obstructive airways disorder [None]
  - Chest pain [None]
  - Nausea [None]
  - Syncope [None]
  - Cardio-respiratory arrest [None]
  - Anaphylactic reaction [None]

NARRATIVE: CASE EVENT DATE: 20151025
